FAERS Safety Report 15065068 (Version 2)
Quarter: 2018Q3

REPORT INFORMATION
  Report Type: Spontaneous
  Country: US (occurrence: US)
  Receive Date: 20180626
  Receipt Date: 20180705
  Transmission Date: 20181010
  Serious: No
  Sender: FDA-Public Use
  Company Number: US-BIOGEN-2018BI00593489

PATIENT
  Age: 33 Year
  Sex: Female

DRUGS (6)
  1. AVONEX [Suspect]
     Active Substance: INTERFERON BETA-1A
     Dosage: TREATMENT DISCONTINUED AFTER THIS DOSE
     Route: 030
     Dates: end: 20180602
  2. AVONEX [Suspect]
     Active Substance: INTERFERON BETA-1A
     Dosage: 1/4 DOSE WEEK1, 1/2 DOSE WEEK2, 3/4 DOSE WEEK 3, FULL DOSE WEEK 4
     Route: 030
     Dates: start: 20180602
  3. AVONEX [Suspect]
     Active Substance: INTERFERON BETA-1A
     Dosage: 1/4 DOSE WEEK1, 1/2 DOSE WEEK2, 3/4 DOSE WEEK 3, FULL DOSE WEEK 4
     Route: 030
  4. AVONEX [Suspect]
     Active Substance: INTERFERON BETA-1A
     Indication: MULTIPLE SCLEROSIS
     Route: 030
     Dates: start: 20180601
  5. AVONEX [Suspect]
     Active Substance: INTERFERON BETA-1A
     Dosage: 1/4 DOSE WEEK1, 1/2 DOSE WEEK2, 3/4 DOSE WEEK 3, FULL DOSE WEEK 4
     Route: 030
  6. AVONEX [Suspect]
     Active Substance: INTERFERON BETA-1A
     Dosage: 1/4 DOSE WEEK1, 1/2 DOSE WEEK2, 3/4 DOSE WEEK 3, FULL DOSE WEEK 4
     Route: 030

REACTIONS (2)
  - Feeling abnormal [Recovered/Resolved]
  - Hypersensitivity [Not Recovered/Not Resolved]

NARRATIVE: CASE EVENT DATE: 20180601
